FAERS Safety Report 20878797 (Version 3)
Quarter: 2022Q3

REPORT INFORMATION
  Report Type: Spontaneous
  Country: AT (occurrence: AT)
  Receive Date: 20220526
  Receipt Date: 20220808
  Transmission Date: 20221026
  Serious: Yes (Hospitalization)
  Sender: FDA-Public Use
  Company Number: AT-JNJFOC-20220540888

PATIENT
  Age: 71 Year
  Sex: Female

DRUGS (1)
  1. STELARA [Suspect]
     Active Substance: USTEKINUMAB
     Indication: Colitis ulcerative
     Dosage: APPROXIMATELY 6MG PER KG BODY WEIGHT

REACTIONS (2)
  - Intestinal perforation [Unknown]
  - Colitis ulcerative [Unknown]
